FAERS Safety Report 11169805 (Version 1)
Quarter: 2015Q2

REPORT INFORMATION
  Report Type: Spontaneous
  Country: US (occurrence: US)
  Receive Date: 20150606
  Receipt Date: 20150606
  Transmission Date: 20150821
  Serious: No
  Sender: FDA-Public Use
  Company Number: US-TEVA-568165USA

PATIENT
  Age: 37 Year
  Sex: Female

DRUGS (1)
  1. COPAXONE [Suspect]
     Active Substance: GLATIRAMER ACETATE
     Indication: MULTIPLE SCLEROSIS
     Route: 058
     Dates: start: 20150429

REACTIONS (10)
  - Dyspnoea [Unknown]
  - Anxiety [Unknown]
  - Injection site erythema [Recovering/Resolving]
  - Administration site bruise [Recovering/Resolving]
  - Injection site pain [Unknown]
  - Fatigue [Unknown]
  - Decreased interest [Unknown]
  - Depression [Unknown]
  - Asthenia [Unknown]
  - Injection site mass [Recovering/Resolving]
